FAERS Safety Report 15394253 (Version 1)
Quarter: 2018Q3

REPORT INFORMATION
  Report Type: Spontaneous
  Country: US (occurrence: US)
  Receive Date: 20180918
  Receipt Date: 20180918
  Transmission Date: 20181010
  Serious: Yes (Other)
  Sender: FDA-Public Use
  Company Number: US-TRIS PHARMA, INC.-2018TRISPO00668

PATIENT

DRUGS (1)
  1. DYANAVEL XR [Suspect]
     Active Substance: AMPHETAMINE
     Indication: ATTENTION DEFICIT/HYPERACTIVITY DISORDER
     Dosage: 03 ML, ONCE A DAY
     Route: 065
     Dates: start: 20180801, end: 201808

REACTIONS (6)
  - Psychotic disorder [Recovered/Resolved]
  - Intentional self-injury [Unknown]
  - Hallucination, auditory [Recovered/Resolved]
  - Suicide attempt [Unknown]
  - Insomnia [Unknown]
  - Off label use [Unknown]
